FAERS Safety Report 21528059 (Version 4)
Quarter: 2022Q4

REPORT INFORMATION
  Report Type: Spontaneous
  Country: JP (occurrence: JP)
  Receive Date: 20221031
  Receipt Date: 20221213
  Transmission Date: 20230112
  Serious: No
  Sender: FDA-Public Use
  Company Number: JP-BAYER-2022A146550

PATIENT
  Age: 7 Decade
  Sex: Male

DRUGS (1)
  1. KERENDIA [Suspect]
     Active Substance: FINERENONE
     Indication: Diabetic nephropathy
     Dosage: DAILY DOSE 10 MG
     Dates: start: 20220808

REACTIONS (1)
  - Blood creatinine increased [Recovering/Resolving]
